FAERS Safety Report 6105105-5 (Version None)
Quarter: 2009Q1

REPORT INFORMATION
  Report Type: 
  Country: None (occurrence: None)
  Receive Date: 20090306
  Receipt Date: 20090225
  Transmission Date: 20090719
  Serious: Yes (Hospitalization, Other)
  Sender: FDA-Public Use
  Company Number: US-ABBOTT-09P-163-0559391-00

PATIENT
  Sex: Female

DRUGS (1)
  1. SYNTHROID [Suspect]
     Indication: THYROID DISORDER
     Dates: start: 19890101, end: 20081001

REACTIONS (6)
  - BLOOD POTASSIUM ABNORMAL [None]
  - CEREBROVASCULAR ACCIDENT [None]
  - DRUG HYPERSENSITIVITY [None]
  - HEART RATE INCREASED [None]
  - MYOCARDIAL INFARCTION [None]
  - WHITE BLOOD CELL COUNT ABNORMAL [None]
